FAERS Safety Report 23474860 (Version 1)
Quarter: 2024Q1

REPORT INFORMATION
  Report Type: Report from Study
  Country: CA (occurrence: CA)
  Receive Date: 20240204
  Receipt Date: 20240204
  Transmission Date: 20240409
  Serious: Yes (Other)
  Sender: FDA-Public Use
  Company Number: CA-IPSEN Group, Research and Development-2023-19758

PATIENT
  Sex: Male

DRUGS (4)
  1. CABOMETYX [Suspect]
     Active Substance: CABOZANTINIB S-MALATE
     Indication: Renal cell carcinoma
     Dosage: 40 MG, QD
     Route: 048
     Dates: start: 20211020
  2. SYNTHROID [Concomitant]
     Active Substance: LEVOTHYROXINE SODIUM
     Dosage: UNK
  3. METFORMIN [Concomitant]
     Active Substance: METFORMIN HYDROCHLORIDE
     Dosage: UNK
  4. SUTENT [Concomitant]
     Active Substance: SUNITINIB MALATE
     Dosage: 37,5 MG PO DAILY, FOR 4 WEEKS FOLLOWED BY 2 WEEKS OFF
     Route: 048

REACTIONS (2)
  - Malignant neoplasm progression [Unknown]
  - Quality of life decreased [Recovering/Resolving]
